FAERS Safety Report 15095650 (Version 2)
Quarter: 2018Q3

REPORT INFORMATION
  Report Type: Spontaneous
  Country: IT (occurrence: IT)
  Receive Date: 20180702
  Receipt Date: 20180706
  Transmission Date: 20181010
  Serious: No
  Sender: FDA-Public Use
  Company Number: IT-ROCHE-2148091

PATIENT
  Age: 47 Year
  Sex: Male

DRUGS (1)
  1. OMALIZUMAB. [Suspect]
     Active Substance: OMALIZUMAB
     Indication: CHRONIC SPONTANEOUS URTICARIA
     Route: 058

REACTIONS (1)
  - Therapy partial responder [Unknown]
